FAERS Safety Report 19588798 (Version 4)
Quarter: 2021Q3

REPORT INFORMATION
  Report Type: Report from Study
  Country: US (occurrence: US)
  Receive Date: 20210721
  Receipt Date: 20210909
  Transmission Date: 20211014
  Serious: Yes (Other)
  Sender: FDA-Public Use
  Company Number: US-JNJFOC-20210740119

PATIENT
  Age: 60 Year
  Sex: Female
  Weight: 54.5 kg

DRUGS (5)
  1. AMBRISENTAN [Concomitant]
     Active Substance: AMBRISENTAN
  2. TADALAFIL. [Suspect]
     Active Substance: TADALAFIL
     Route: 065
  3. SELEXIPAG [Suspect]
     Active Substance: SELEXIPAG
     Indication: PULMONARY ARTERIAL HYPERTENSION
     Route: 048
  4. OXYGEN. [Concomitant]
     Active Substance: OXYGEN
  5. ADCIRCA [Concomitant]
     Active Substance: TADALAFIL

REACTIONS (8)
  - Cardiac septal defect [Unknown]
  - Fatigue [Unknown]
  - Dyspnoea at rest [Unknown]
  - Condition aggravated [Unknown]
  - Malaise [Unknown]
  - Syncope [Unknown]
  - Ovarian mass [Unknown]
  - Dyspnoea exertional [Unknown]

NARRATIVE: CASE EVENT DATE: 202107
